FAERS Safety Report 11128493 (Version 1)
Quarter: 2015Q2

REPORT INFORMATION
  Report Type: Spontaneous
  Country: US (occurrence: US)
  Receive Date: 20150521
  Receipt Date: 20150521
  Transmission Date: 20150821
  Serious: Yes (Other)
  Sender: FDA-Public Use
  Company Number: US-SA-2015SA067634

PATIENT
  Age: 80 Year
  Sex: Male

DRUGS (4)
  1. LANTUS SOLOSTAR [Concomitant]
     Active Substance: INSULIN GLARGINE
     Dates: start: 2009
  2. LANTUS [Concomitant]
     Active Substance: INSULIN GLARGINE
     Dates: start: 2009
  3. APIDRA [Suspect]
     Active Substance: INSULIN GLULISINE
     Indication: TYPE 2 DIABETES MELLITUS
     Dosage: DOSE: SLIDING SCALE
     Route: 065
     Dates: start: 2012
  4. SOLOSTAR [Concomitant]
     Active Substance: DEVICE
     Dates: start: 2009

REACTIONS (1)
  - Haematological malignancy [Unknown]

NARRATIVE: CASE EVENT DATE: 2014
